FAERS Safety Report 7196895-1 (Version None)
Quarter: 2010Q4

REPORT INFORMATION
  Report Type: 
  Country: None (occurrence: None)
  Receive Date: 20101223
  Receipt Date: 20101213
  Transmission Date: 20110411
  Serious: Yes (Other)
  Sender: FDA-Public Use
  Company Number: US-PFIZER INC-2010150665

PATIENT
  Sex: Female
  Weight: 110 kg

DRUGS (6)
  1. LIPITOR [Suspect]
     Indication: BLOOD CHOLESTEROL INCREASED
     Dosage: 40 MG, 1X/DAY
     Route: 048
     Dates: end: 20100601
  2. BENICAR HCT [Suspect]
     Indication: HYPERTENSION
     Dosage: 20/12.5
     Route: 048
     Dates: start: 20080401, end: 20101011
  3. BENAZEPRIL [Suspect]
     Indication: HYPERTENSION
     Dosage: UNK
     Route: 048
     Dates: start: 20100601, end: 20100901
  4. LOVASTATIN [Suspect]
     Indication: BLOOD CHOLESTEROL INCREASED
     Dosage: 40 MG, 1X/DAY
     Route: 048
     Dates: start: 20100601, end: 20100731
  5. FENOFIBRIC ACID [Concomitant]
     Indication: BLOOD TRIGLYCERIDES INCREASED
     Dosage: 105 MG, 1X/DAY
     Route: 048
     Dates: start: 20090101
  6. FENOFIBRIC ACID [Concomitant]
     Dosage: 105 MG, 1X/DAY
     Route: 048
     Dates: start: 20090101

REACTIONS (8)
  - ANGIOEDEMA [None]
  - DYSPNOEA [None]
  - HYPOAESTHESIA ORAL [None]
  - LIP SWELLING [None]
  - PARAESTHESIA [None]
  - SWELLING [None]
  - SWELLING FACE [None]
  - SWOLLEN TONGUE [None]
